FAERS Safety Report 5510632-5 (Version None)
Quarter: 2007Q4

REPORT INFORMATION
  Report Type: 
  Country: None (occurrence: None)
  Receive Date: 20071108
  Receipt Date: 20071102
  Transmission Date: 20080405
  Serious: Yes (Hospitalization)
  Sender: FDA-Public Use
  Company Number: US-BOEHRINGER INGELHEIM PHARMACEUTICALS, INC.-2007-BP-23968YA

PATIENT
  Sex: Male

DRUGS (11)
  1. TAMSULOSIN HCL [Suspect]
     Indication: MICTURITION URGENCY
     Route: 048
     Dates: start: 20061108, end: 20071012
  2. DEGARELIX [Suspect]
     Indication: PROSTATE CANCER
     Route: 058
     Dates: start: 20060821, end: 20060821
  3. DEGARELIX [Suspect]
     Route: 058
     Dates: start: 20060918, end: 20070724
  4. DEGARELIX [Suspect]
     Route: 058
     Dates: start: 20070820
  5. ASPIRIN [Concomitant]
     Route: 048
     Dates: start: 20061109
  6. LACTULOSE [Concomitant]
     Route: 048
  7. ESZOPICLONE [Concomitant]
     Route: 048
  8. MACROGOL [Concomitant]
     Route: 048
     Dates: start: 20061109
  9. PLANTAGO OVATA [Concomitant]
     Route: 048
  10. MULTIVITAMIN [Concomitant]
  11. MIRTAZAPINE [Concomitant]
     Route: 048

REACTIONS (1)
  - SYNCOPE VASOVAGAL [None]
